FAERS Safety Report 14807647 (Version 2)
Quarter: 2018Q2

REPORT INFORMATION
  Report Type: Spontaneous
  Country: BE (occurrence: BE)
  Receive Date: 20180425
  Receipt Date: 20180516
  Transmission Date: 20180711
  Serious: Yes (Other)
  Sender: FDA-Public Use
  Company Number: BE-PFIZER INC-2018161957

PATIENT
  Age: 61 Year
  Sex: Female

DRUGS (6)
  1. TOTALIP [Suspect]
     Active Substance: ATORVASTATIN
     Dosage: 40 MG
  2. HERIA [Suspect]
     Active Substance: TIBOLONE
     Dosage: UNK, DAILY
  3. ZANIDIP [Suspect]
     Active Substance: LERCANIDIPINE HYDROCHLORIDE
     Dosage: 10 MG, DAILY
  4. LIPANTHYL [Suspect]
     Active Substance: FENOFIBRATE
     Dosage: UNK, DAILY
  5. ASAFLOW [Suspect]
     Active Substance: ASPIRIN
     Dosage: 80 MG, DAILY
  6. OLMETEC PLUS [Suspect]
     Active Substance: HYDROCHLOROTHIAZIDE\OLMESARTAN MEDOXOMIL
     Dosage: UNK, DAILY

REACTIONS (3)
  - Lipase increased [Unknown]
  - Amylase increased [Unknown]
  - Hepatic mass [Unknown]
